FAERS Safety Report 15956482 (Version 2)
Quarter: 2019Q2

REPORT INFORMATION
  Report Type: Spontaneous
  Country: US (occurrence: US)
  Receive Date: 20190213
  Receipt Date: 20190601
  Transmission Date: 20190711
  Serious: No
  Sender: FDA-Public Use
  Company Number: US-TEVA-2019-US-999855

PATIENT
  Age: 77 Year
  Sex: Female

DRUGS (1)
  1. TEVA TRAZODONE HYDROCHLORIDE [Suspect]
     Active Substance: TRAZODONE HYDROCHLORIDE
     Route: 065

REACTIONS (3)
  - Foreign body in respiratory tract [Unknown]
  - Product shape issue [Unknown]
  - Product use complaint [Unknown]
